FAERS Safety Report 4617722-X (Version None)
Quarter: 2005Q1

REPORT INFORMATION
  Report Type: 
  Country: None (occurrence: None)
  Receive Date: 20050322
  Receipt Date: 20050309
  Transmission Date: 20050727
  Serious: Yes (Other)
  Sender: FDA-Public Use
  Company Number: GBWYE513618MAR05

PATIENT

DRUGS (1)
  1. CHILDREN'S ADVIL [Suspect]
     Dosage: ORAL
     Route: 048

REACTIONS (1)
  - HYPOTHERMIA [None]
